FAERS Safety Report 21410826 (Version 1)
Quarter: 2022Q4

REPORT INFORMATION
  Report Type: Spontaneous
  Country: US (occurrence: US)
  Receive Date: 20221005
  Receipt Date: 20221005
  Transmission Date: 20230113
  Serious: Yes (Hospitalization)
  Sender: FDA-Public Use
  Company Number: US-MYLANLABS-2022M1110462

PATIENT
  Age: 59 Year
  Sex: Female

DRUGS (6)
  1. VANCOMYCIN [Suspect]
     Active Substance: VANCOMYCIN
     Indication: Endophthalmitis
     Dosage: 1 MILLIGRAM (THE PATIENT RECEIVED INTRAVITRAL INJECTION OF VANCOMYCIN 1MG)
  2. LEVOFLOXACIN [Suspect]
     Active Substance: LEVOFLOXACIN
     Indication: Endophthalmitis
     Dosage: UNK
     Route: 048
  3. METHYLPREDNISOLONE [Suspect]
     Active Substance: METHYLPREDNISOLONE
     Indication: Endophthalmitis
     Dosage: THE PATIENT RECEIVED TWO TAPERING PACKS OF ORAL METHYLPREDNISOLONE
     Route: 048
  4. PREDNISOLONE ACETATE [Suspect]
     Active Substance: PREDNISOLONE ACETATE
     Indication: Endophthalmitis
     Dosage: THE PATIENT RECEIVED TOPICAL PREDNISOLONE ACETATE 1%
     Route: 061
  5. ATROPINE SULFATE [Suspect]
     Active Substance: ATROPINE SULFATE
     Indication: Endophthalmitis
     Dosage: THE PATIENT RECEIVED TOPICAL ATROPINE 1%
     Route: 061
  6. CEFTAZIDIME [Suspect]
     Active Substance: CEFTAZIDIME
     Indication: Endophthalmitis
     Dosage: 2.25 MILLIGRAM (THE PATIENT RECEIVED INTRAVITRAL INJECTION OF CEFTAZIDIME 2.25MG)

REACTIONS (2)
  - Drug ineffective [Unknown]
  - Off label use [Unknown]
